FAERS Safety Report 8845892 (Version 6)
Quarter: 2017Q2

REPORT INFORMATION
  Report Type: Spontaneous
  Country: US (occurrence: US)
  Receive Date: 20121017
  Receipt Date: 20170530
  Transmission Date: 20170830
  Serious: Yes (Disabling, Other)
  Sender: FDA-Public Use
  Company Number: US-009507513-1210USA007092

PATIENT
  Sex: Male
  Weight: 68.93 kg

DRUGS (2)
  1. PROPECIA [Suspect]
     Active Substance: FINASTERIDE
     Indication: ANDROGENETIC ALOPECIA
     Dosage: 1 MG, QD
     Route: 048
     Dates: start: 2000, end: 201208
  2. FINASTERIDE. [Suspect]
     Active Substance: FINASTERIDE
     Indication: ANDROGENETIC ALOPECIA
     Dosage: 5 MG, QD
     Route: 048

REACTIONS (36)
  - Libido decreased [Not Recovered/Not Resolved]
  - Supraventricular extrasystoles [Unknown]
  - Arthralgia [Unknown]
  - Loss of consciousness [Unknown]
  - Nasal septum deviation [Unknown]
  - Ejaculation disorder [Not Recovered/Not Resolved]
  - Depression [Not Recovered/Not Resolved]
  - Genitals enlarged [Unknown]
  - Hiatus hernia [Unknown]
  - Diarrhoea [Not Recovered/Not Resolved]
  - Headache [Unknown]
  - Presyncope [Unknown]
  - Urine cytology abnormal [Unknown]
  - Sexual dysfunction [Not Recovered/Not Resolved]
  - Actinic keratosis [Unknown]
  - Fatigue [Not Recovered/Not Resolved]
  - Myalgia [Unknown]
  - Haematuria [Unknown]
  - Dizziness [Unknown]
  - Anxiety [Not Recovered/Not Resolved]
  - Neck pain [Unknown]
  - Gastrooesophageal reflux disease [Unknown]
  - Angina pectoris [Unknown]
  - Blood creatine phosphokinase MB increased [Not Recovered/Not Resolved]
  - Insomnia [Not Recovered/Not Resolved]
  - Muscular weakness [Unknown]
  - Drug administration error [Unknown]
  - Semen volume decreased [Not Recovered/Not Resolved]
  - Haemoptysis [Unknown]
  - Sinus arrhythmia [Unknown]
  - Cognitive disorder [Not Recovered/Not Resolved]
  - Erectile dysfunction [Not Recovered/Not Resolved]
  - Night sweats [Unknown]
  - Stress [Unknown]
  - Migraine [Unknown]
  - Increased viscosity of upper respiratory secretion [Unknown]

NARRATIVE: CASE EVENT DATE: 2000
